FAERS Safety Report 15121256 (Version 3)
Quarter: 2021Q1

REPORT INFORMATION
  Report Type: Report from Study
  Country: MX (occurrence: MX)
  Receive Date: 20180709
  Receipt Date: 20210112
  Transmission Date: 20210419
  Serious: Yes (Death)
  Sender: FDA-Public Use
  Company Number: MX-UCBSA-2018028928

PATIENT
  Sex: Female
  Weight: 40 kg

DRUGS (4)
  1. LEVETIRACETAM. [Suspect]
     Active Substance: LEVETIRACETAM
     Indication: EPILEPSY
     Dosage: DOES NOT REMEMBER THE INITIAL DOSE (100 MG/ML)
     Route: 048
     Dates: start: 2011
  2. NEXIUM [Concomitant]
     Active Substance: ESOMEPRAZOLE MAGNESIUM
     Indication: GASTRIC DISORDER
     Dosage: 1 SACHET DAILY, 2X/DAY (BID)
     Route: 048
     Dates: start: 2011, end: 20170909
  3. LEVETIRACETAM. [Suspect]
     Active Substance: LEVETIRACETAM
     Dosage: 9 ML 2 OR 3 TIMES A DAY (100 MG/ML)
     Route: 048
     Dates: end: 20170909
  4. TOPAMAX [Concomitant]
     Active Substance: TOPIRAMATE
     Indication: SEIZURE
     Dosage: 25MG (1/2 OF A TABLET/12 HRS).
     Dates: start: 2011, end: 20170909

REACTIONS (2)
  - Pneumonia [Fatal]
  - Off label use [Unknown]

NARRATIVE: CASE EVENT DATE: 2011
